FAERS Safety Report 16668051 (Version 3)
Quarter: 2019Q3

REPORT INFORMATION
  Report Type: Spontaneous
  Country: US (occurrence: US)
  Receive Date: 20190805
  Receipt Date: 20190920
  Transmission Date: 20191004
  Serious: Yes (Other)
  Sender: FDA-Public Use
  Company Number: US-JNJFOC-20190741676

PATIENT
  Sex: Male
  Weight: 78.09 kg

DRUGS (8)
  1. BENZTROPINE. [Concomitant]
     Active Substance: BENZTROPINE
  2. NEXIUM [Concomitant]
     Active Substance: ESOMEPRAZOLE MAGNESIUM
     Indication: GASTROOESOPHAGEAL REFLUX DISEASE
  3. INVEGA [Suspect]
     Active Substance: PALIPERIDONE
     Route: 048
  4. NYSTATIN. [Concomitant]
     Active Substance: NYSTATIN
  5. INVEGA SUSTENNA [Suspect]
     Active Substance: PALIPERIDONE PALMITATE
     Indication: SCHIZOPHRENIA
     Route: 030
     Dates: start: 2006
  6. CALOMEL. [Concomitant]
     Active Substance: CALOMEL
  7. INVEGA [Suspect]
     Active Substance: PALIPERIDONE
     Indication: SCHIZOPHRENIA
     Route: 048
     Dates: start: 2004
  8. INVEGA [Suspect]
     Active Substance: PALIPERIDONE
     Route: 048

REACTIONS (17)
  - Obsessive-compulsive disorder [Unknown]
  - Metabolic disorder [Unknown]
  - Off label use [Unknown]
  - Autism spectrum disorder [Unknown]
  - Temperature intolerance [Unknown]
  - Bipolar disorder [Unknown]
  - Sensitive skin [Unknown]
  - Schizophrenia [Unknown]
  - Pain in extremity [Unknown]
  - Fatigue [Unknown]
  - Insomnia [Unknown]
  - Anxiety [Unknown]
  - Hypothyroidism [Unknown]
  - Paraesthesia [Unknown]
  - Inappropriate schedule of product administration [Unknown]
  - Bladder disorder [Unknown]
  - Pruritus [Unknown]

NARRATIVE: CASE EVENT DATE: 2006
